FAERS Safety Report 20186725 (Version 1)
Quarter: 2021Q4

REPORT INFORMATION
  Report Type: Spontaneous
  Country: JP (occurrence: JP)
  Receive Date: 20211215
  Receipt Date: 20211215
  Transmission Date: 20220303
  Serious: Yes (Other)
  Sender: FDA-Public Use
  Company Number: JP-BAYER-2021A249414

PATIENT
  Age: 78 Year
  Sex: Male

DRUGS (4)
  1. XOFIGO [Suspect]
     Active Substance: RADIUM RA-223 DICHLORIDE
     Indication: Hormone-refractory prostate cancer
     Dosage: UNK
     Route: 042
     Dates: start: 201910, end: 202002
  2. XARELTO [Concomitant]
     Active Substance: RIVAROXABAN
  3. LEUPLIN [Concomitant]
     Active Substance: LEUPROLIDE ACETATE
  4. DENOSUMAB [Concomitant]
     Active Substance: DENOSUMAB

REACTIONS (10)
  - Pancytopenia [None]
  - Bone marrow failure [None]
  - Arrhythmia [None]
  - Weight decreased [None]
  - Anaemia [Not Recovered/Not Resolved]
  - Decreased appetite [Not Recovered/Not Resolved]
  - Weight decreased [None]
  - Malaise [None]
  - Nausea [None]
  - Diarrhoea [None]

NARRATIVE: CASE EVENT DATE: 20200201
